FAERS Safety Report 23329581 (Version 1)
Quarter: 2023Q4

REPORT INFORMATION
  Report Type: Spontaneous
  Country: US (occurrence: US)
  Receive Date: 20231222
  Receipt Date: 20231222
  Transmission Date: 20240110
  Serious: Yes (Other)
  Sender: FDA-Public Use
  Company Number: US-ABBVIE-5551321

PATIENT
  Sex: Female

DRUGS (1)
  1. CARAFATE [Suspect]
     Active Substance: SUCRALFATE
     Indication: Product used for unknown indication
     Route: 065
     Dates: start: 202312

REACTIONS (4)
  - Gastrointestinal pain [Unknown]
  - Gastritis [Unknown]
  - Food intolerance [Unknown]
  - Retching [Unknown]

NARRATIVE: CASE EVENT DATE: 20231201
